FAERS Safety Report 6976028-4 (Version None)
Quarter: 2010Q3

REPORT INFORMATION
  Report Type: 
  Country: None (occurrence: None)
  Receive Date: 20100910
  Receipt Date: 20100907
  Transmission Date: 20110219
  Serious: Yes (Life-Threatening)
  Sender: FDA-Public Use
  Company Number: JP-ASTRAZENECA-2010SE39896

PATIENT
  Age: 80 Year
  Sex: Female
  Weight: 38 kg

DRUGS (4)
  1. TENORMIN [Suspect]
     Route: 048
  2. CLOTIAZEPAM [Suspect]
     Dosage: DOSE UNKNOWN
     Route: 048
  3. TEPRENONE [Suspect]
     Dosage: DOSE UNKNOWN
     Route: 048
  4. PENFILL 50R [Suspect]
     Dosage: NUMBER OF SEPARATE DOSAGES UNKNOWN
     Route: 065

REACTIONS (1)
  - ACQUIRED HAEMOPHILIA WITH ANTI FVIII, XI, OR XIII [None]
